FAERS Safety Report 15182602 (Version 2)
Quarter: 2018Q4

REPORT INFORMATION
  Report Type: Report from Study
  Country: US (occurrence: US)
  Receive Date: 20180723
  Receipt Date: 20181017
  Transmission Date: 20190204
  Serious: No
  Sender: FDA-Public Use
  Company Number: US-AMGEN-USASL2018096258

PATIENT
  Age: 44 Year
  Sex: Female

DRUGS (1)
  1. REPATHA [Suspect]
     Active Substance: EVOLOCUMAB
     Indication: TYPE IIA HYPERLIPIDAEMIA
     Dosage: 140 MG, Q2WK
     Route: 065

REACTIONS (10)
  - Urinary tract infection [Unknown]
  - Pain [Unknown]
  - Back pain [Unknown]
  - Abdominal pain upper [Unknown]
  - Dental discomfort [Unknown]
  - Influenza like illness [Unknown]
  - Muscle spasms [Unknown]
  - Weight increased [Unknown]
  - Rhinorrhoea [Unknown]
  - Sinus disorder [Unknown]
